FAERS Safety Report 14337724 (Version 4)
Quarter: 2018Q2

REPORT INFORMATION
  Report Type: Report from Study
  Country: AU (occurrence: AU)
  Receive Date: 20171229
  Receipt Date: 20180524
  Transmission Date: 20180711
  Serious: Yes (Other)
  Sender: FDA-Public Use
  Company Number: AU-UCBSA-2017037869

PATIENT
  Age: 18 Year
  Sex: Female

DRUGS (6)
  1. LEVETIRACETAM. [Suspect]
     Active Substance: LEVETIRACETAM
     Indication: EPILEPSY
     Dosage: DOSE INCREASED
  2. LAMICTAL [Suspect]
     Active Substance: LAMOTRIGINE
     Indication: SEIZURE
     Dosage: UNK
  3. LEVETIRACETAM. [Suspect]
     Active Substance: LEVETIRACETAM
     Indication: SEIZURE
     Dosage: UNK
  4. PROZAC [Suspect]
     Active Substance: FLUOXETINE HYDROCHLORIDE
     Indication: SEIZURE
     Dosage: UNK
  5. CLOBAZAM [Concomitant]
     Active Substance: CLOBAZAM
     Indication: SEIZURE
  6. VITAMIN B6 [Concomitant]
     Active Substance: PYRIDOXINE HYDROCHLORIDE
     Indication: AFFECTIVE DISORDER

REACTIONS (9)
  - Seizure [Recovering/Resolving]
  - Affective disorder [Recovering/Resolving]
  - Depression [Recovering/Resolving]
  - Focal dyscognitive seizures [Unknown]
  - Epilepsy [Unknown]
  - Psychogenic seizure [Recovered/Resolved]
  - Generalised tonic-clonic seizure [Unknown]
  - Anxiety [Unknown]
  - Aura [Unknown]
